FAERS Safety Report 7776263-1 (Version None)
Quarter: 2011Q3

REPORT INFORMATION
  Report Type: 
  Country: None (occurrence: None)
  Receive Date: 20110921
  Receipt Date: 20110906
  Transmission Date: 20111222
  Serious: Yes (Other)
  Sender: FDA-Public Use
  Company Number: AUR-APL-2011-04929

PATIENT
  Age: 84 Year
  Sex: Male
  Weight: 80 kg

DRUGS (17)
  1. AMITRIPTYLINE HYDROCHLORIDE [Concomitant]
  2. ENALAPRIL MALEATE [Concomitant]
  3. LORATADINE [Concomitant]
  4. BETAHISTINE (BETAHISTINE) [Concomitant]
  5. ACETAMINOPHEN [Concomitant]
  6. SIMVASTATIN [Concomitant]
  7. NITROGLYCERIN [Concomitant]
  8. ISOSORBIDE MONONITRATE [Concomitant]
  9. DOXAZOSIN MESYLATE [Concomitant]
  10. OMEPRAZOLE [Concomitant]
  11. TAMSULOSIN HCL [Concomitant]
  12. CODEINE PHOSPHATE(CODEINE PHOSPHATE) [Concomitant]
  13. GLICLAZIDE (GLICLAZIDE) [Concomitant]
  14. METFORMIN HCL [Concomitant]
  15. FINASTERIDE [Suspect]
     Indication: PRODUCT USED FOR UNKNOWN INDICATION
     Dates: start: 20110801
  16. BISOPROLOL FUMARATE [Concomitant]
  17. FLOXACILLIN SODIUM [Concomitant]

REACTIONS (1)
  - DIARRHOEA [None]
